FAERS Safety Report 6724441-2 (Version None)
Quarter: 2010Q2

REPORT INFORMATION
  Report Type: 
  Country: None (occurrence: None)
  Receive Date: 20100513
  Receipt Date: 20100507
  Transmission Date: 20101027
  Serious: Yes (Hospitalization)
  Sender: FDA-Public Use
  Company Number: JP-GENENTECH-298284

PATIENT
  Age: 64 Year
  Sex: Male

DRUGS (16)
  1. RITUXAN [Suspect]
     Indication: MANTLE CELL LYMPHOMA
     Dosage: 250 MG/M2, SINGLE
     Route: 042
     Dates: start: 20091209
  2. RITUXAN [Suspect]
     Dosage: 250 MG/M2, SINGLE
     Route: 042
     Dates: start: 20091216
  3. ZEVALIN [Suspect]
     Indication: MANTLE CELL LYMPHOMA
     Dosage: 11.1 UNK, UNKNOWN
     Route: 042
     Dates: start: 20091216
  4. ZEVALIN [Suspect]
     Indication: MANTLE CELL LYMPHOMA
     Dosage: 130 MBQ, UNKNOWN
     Route: 042
     Dates: start: 20091209
  5. FAMOTIDINE [Concomitant]
     Indication: DRUG USE FOR UNKNOWN INDICATION
     Dosage: 40 MG, QD
     Route: 048
  6. CYANOCOBALAMIN [Concomitant]
     Indication: DRUG USE FOR UNKNOWN INDICATION
     Dosage: 1500 A?G, QD
     Route: 048
  7. ENTERONON-R [Concomitant]
     Indication: DRUG USE FOR UNKNOWN INDICATION
     Dosage: 3 G, QD
     Route: 048
  8. ALLOPURINOL [Concomitant]
     Indication: DRUG USE FOR UNKNOWN INDICATION
     Dosage: 100 MG, QD
     Route: 048
  9. AMLODIPINE BESYLATE [Concomitant]
     Indication: DRUG USE FOR UNKNOWN INDICATION
     Dosage: 2.5 G, QD
     Route: 048
  10. HERBAL NERVE TONIC LIQUID [Concomitant]
     Indication: DRUG USE FOR UNKNOWN INDICATION
     Dosage: 7.5 G, QD
     Route: 048
  11. ITRIZOLE [Concomitant]
     Indication: PROPHYLAXIS
     Dosage: 50 MG, QD
     Route: 048
  12. MAGNESIUM OXIDE [Concomitant]
     Indication: DRUG USE FOR UNKNOWN INDICATION
     Dosage: 1500 MG, QD
     Route: 048
  13. COTRIM [Concomitant]
     Indication: PROPHYLAXIS
     Dosage: 50 MG, QD
     Route: 048
     Dates: start: 20091208, end: 20100308
  14. ROHYPNOL [Concomitant]
     Indication: DRUG USE FOR UNKNOWN INDICATION
     Dosage: 1 MG, QD
     Route: 048
     Dates: start: 20091208, end: 20100221
  15. IBRUPROFEN [Concomitant]
     Indication: PREMEDICATION
     Dosage: 200 MG, SINGLE
     Route: 048
     Dates: start: 20091209
  16. IBRUPROFEN [Concomitant]
     Dosage: 200 MG, SINGLE
     Route: 048
     Dates: start: 20091216

REACTIONS (3)
  - NEUTROPHIL COUNT DECREASED [None]
  - VERTIGO POSITIONAL [None]
  - WHITE BLOOD CELL COUNT DECREASED [None]
